FAERS Safety Report 4701474-9 (Version None)
Quarter: 2005Q2

REPORT INFORMATION
  Report Type: 
  Country: None (occurrence: None)
  Receive Date: 20050628
  Receipt Date: 20050617
  Transmission Date: 20051028
  Serious: Yes (Hospitalization)
  Sender: FDA-Public Use
  Company Number: US-ROCHE-408320

PATIENT
  Sex: Male

DRUGS (3)
  1. PEGASYS [Suspect]
     Route: 065
     Dates: start: 20030905, end: 20040515
  2. COPEGUS [Suspect]
     Route: 048
     Dates: start: 20030905, end: 20040515
  3. HALDOL [Concomitant]

REACTIONS (6)
  - DEHYDRATION [None]
  - DEPRESSION [None]
  - HALLUCINATION [None]
  - INFLUENZA LIKE ILLNESS [None]
  - NAUSEA [None]
  - VIRAL LOAD INCREASED [None]
